FAERS Safety Report 8764377 (Version 1)
Quarter: 2012Q4

REPORT INFORMATION
  Report Type: 
  Country: US (occurrence: US)
  Receive Date: 20120831
  Receipt Date: 20120831
  Transmission Date: 20130627
  Serious: Yes (Hospitalization)
  Sender: FDA-Public Use
  Company Number: PHHY2012US073497

PATIENT
  Age: 57 Year
  Sex: Male

DRUGS (2)
  1. RIBAVIRIN [Suspect]
     Dosage: 800 mg, UNK
  2. PEGINTERFERON ALFA-2A [Suspect]
     Dosage: 0.18 mg, UNK

REACTIONS (20)
  - Renal impairment [Recovered/Resolved]
  - Angiotensin converting enzyme increased [Recovered/Resolved]
  - Hepatomegaly [Recovered/Resolved]
  - Sarcoidosis [Unknown]
  - Hypercalcaemia [Recovered/Resolved]
  - Nausea [Recovered/Resolved]
  - Dyspepsia [Recovered/Resolved]
  - Arthralgia [Recovered/Resolved]
  - Oedema peripheral [Recovered/Resolved]
  - Rash [Recovered/Resolved]
  - Insomnia [Recovered/Resolved]
  - Hypovolaemia [Recovered/Resolved]
  - Blood urea increased [Recovered/Resolved]
  - Blood creatinine increased [Recovered/Resolved]
  - Vomiting [Recovered/Resolved]
  - Hypophagia [Recovered/Resolved]
  - Fatigue [Recovered/Resolved]
  - Decreased appetite [Recovered/Resolved]
  - Hypercalciuria [Recovered/Resolved]
  - Weight decreased [Recovered/Resolved]
